FAERS Safety Report 7137904-5 (Version None)
Quarter: 2010Q4

REPORT INFORMATION
  Report Type: 
  Country: None (occurrence: None)
  Receive Date: 20101103
  Receipt Date: 20100617
  Transmission Date: 20110411
  Serious: Yes (Other)
  Sender: FDA-Public Use
  Company Number: US-WYE-H16089110

PATIENT
  Age: 52 Year
  Sex: Female

DRUGS (8)
  1. EFFEXOR XR [Suspect]
     Indication: HOT FLUSH
     Dosage: 75 MG 1X PER 1 DAY ; 75 MG 1X PER 1 DAY
     Dates: start: 20090701, end: 20100608
  2. EFFEXOR XR [Suspect]
     Indication: HOT FLUSH
     Dosage: 75 MG 1X PER 1 DAY ; 75 MG 1X PER 1 DAY
     Dates: start: 20100611
  3. SYNTHROID [Concomitant]
  4. NORVASC [Concomitant]
  5. NEBIVOLOL HCL [Concomitant]
  6. MICARDIS [Concomitant]
  7. CRESTOR [Concomitant]
  8. TAMOXIFEN CITRATE [Concomitant]

REACTIONS (5)
  - DIZZINESS [None]
  - DRUG WITHDRAWAL SYNDROME [None]
  - FATIGUE [None]
  - LABYRINTHITIS [None]
  - NAUSEA [None]
